FAERS Safety Report 8979807 (Version 1)
Quarter: 2012Q4

REPORT INFORMATION
  Report Type: 
  Country: US (occurrence: US)
  Receive Date: 20121212
  Receipt Date: 20121212
  Transmission Date: 20130627
  Serious: Yes (Death)
  Sender: FDA-Public Use
  Company Number: US-ASTELLAS-1119409

PATIENT
  Age: 60 Year
  Sex: Male

DRUGS (2)
  1. TARCEVA [Suspect]
     Indication: MALIGNANT RESPIRATORY TRACT NEOPLASM
     Route: 065
  2. TARCEVA [Suspect]
     Dosage: 75 MG ON ONE DAY AND 150 MG ON OTHER DAY (ALTERNATE DAY)
     Route: 065

REACTIONS (2)
  - Rash generalised [Unknown]
  - Death [Fatal]
